FAERS Safety Report 6087643-7 (Version None)
Quarter: 2009Q1

REPORT INFORMATION
  Report Type: 
  Country: None (occurrence: None)
  Receive Date: 20090223
  Receipt Date: 20090216
  Transmission Date: 20090719
  Serious: Yes (Hospitalization)
  Sender: FDA-Public Use
  Company Number: FR-BRISTOL-MYERS SQUIBB COMPANY-14509160

PATIENT
  Age: 66 Year
  Sex: Female

DRUGS (1)
  1. DASATINIB [Suspect]
     Indication: ACUTE LYMPHOCYTIC LEUKAEMIA
     Dosage: INTERRUPTED ON 13FEB2009.
     Route: 048
     Dates: start: 20090130

REACTIONS (2)
  - LUNG DISORDER [None]
  - PLEURISY [None]
